FAERS Safety Report 24384632 (Version 1)
Quarter: 2024Q4

REPORT INFORMATION
  Report Type: Spontaneous
  Country: US (occurrence: US)
  Receive Date: 20241001
  Receipt Date: 20241001
  Transmission Date: 20250114
  Serious: Yes (Hospitalization, Other)
  Sender: MERCK
  Company Number: US-009507513-2409USA008636

PATIENT
  Age: 70 Year
  Sex: Female

DRUGS (5)
  1. WINREVAIR [Suspect]
     Active Substance: SOTATERCEPT-CSRK
     Indication: Product used for unknown indication
     Dosage: MAINTENANCE DOSE, UNKNOWN
     Dates: start: 202405
  2. REMODULIN [Suspect]
     Active Substance: TREPROSTINIL
     Indication: Pulmonary arterial hypertension
     Dosage: 0.034 MICROGRAM PER KILOGRAM, CONTINUOUS
     Route: 041
     Dates: start: 202210
  3. REMODULIN [Suspect]
     Active Substance: TREPROSTINIL
     Dosage: 0.036 MICROGRAM PER KILOGRAM, CONTINUOUS
     Route: 041
  4. SILDENAFIL [Concomitant]
     Active Substance: SILDENAFIL
     Dosage: UNK
  5. OPSUMIT [Concomitant]
     Active Substance: MACITENTAN
     Dosage: UNK

REACTIONS (1)
  - Gastrointestinal haemorrhage [Unknown]

NARRATIVE: CASE EVENT DATE: 20240801
